FAERS Safety Report 17485197 (Version 1)
Quarter: 2020Q1

REPORT INFORMATION
  Report Type: Spontaneous
  Country: FR (occurrence: FR)
  Receive Date: 20200302
  Receipt Date: 20200302
  Transmission Date: 20200409
  Serious: Yes (Other)
  Sender: FDA-Public Use
  Company Number: FR-PFM-2020-02375

PATIENT

DRUGS (1)
  1. HEMANGIOL [Suspect]
     Active Substance: PROPRANOLOL HYDROCHLORIDE
     Indication: INFANTILE HAEMANGIOMA
     Dosage: 3 MG/KG, UNK
     Route: 048
     Dates: start: 20170517, end: 201712

REACTIONS (5)
  - Lung disorder [Recovered/Resolved]
  - Bronchiolitis [Recovered/Resolved]
  - Off label use [Unknown]
  - Gastroenteritis [Recovered/Resolved]
  - Incorrect product administration duration [Unknown]

NARRATIVE: CASE EVENT DATE: 201712
